FAERS Safety Report 7553037 (Version 21)
Quarter: 2015Q2

REPORT INFORMATION
  Report Type: Spontaneous
  Country: IE (occurrence: IE)
  Receive Date: 20100825
  Receipt Date: 20150420
  Transmission Date: 20150821
  Serious: Yes (Life-Threatening, Hospitalization, Other)
  Sender: FDA-Public Use
  Company Number: PHFR2010IE01201

PATIENT
  Age: 52 Year
  Sex: Male

DRUGS (7)
  1. CLOZARIL [Suspect]
     Active Substance: CLOZAPINE
     Dosage: 250 MG, QD
     Route: 048
  2. CLOZARIL [Suspect]
     Active Substance: CLOZAPINE
     Dosage: UNK
     Route: 048
  3. SALBUTAMOL [Concomitant]
     Active Substance: ALBUTEROL
     Indication: ASTHMA
     Dosage: UNK
     Route: 055
  4. EPILIM [Concomitant]
     Active Substance: VALPROATE SODIUM
     Indication: PRODUCT USED FOR UNKNOWN INDICATION
     Dosage: UNK
     Route: 048
  5. CLOZARIL [Suspect]
     Active Substance: CLOZAPINE
     Indication: SCHIZOPHRENIA
     Dosage: 25 MG MORNING, 75 MG NIGHT
     Route: 048
     Dates: start: 20050113, end: 200806
  6. CLOZARIL [Suspect]
     Active Substance: CLOZAPINE
     Dosage: 150 MG, BID
     Route: 048
     Dates: start: 20080613
  7. VENLAFAXINE [Concomitant]
     Active Substance: VENLAFAXINE HYDROCHLORIDE
     Indication: PRODUCT USED FOR UNKNOWN INDICATION
     Dosage: 225 MG/DAY
     Route: 048

REACTIONS (18)
  - Sinus tachycardia [Not Recovered/Not Resolved]
  - Balance disorder [Unknown]
  - Renal impairment [Recovered/Resolved]
  - Differential white blood cell count abnormal [Not Recovered/Not Resolved]
  - Decreased appetite [Recovered/Resolved]
  - Weight decreased [Recovered/Resolved]
  - Syncope [Not Recovered/Not Resolved]
  - Herpes zoster [Unknown]
  - Tinnitus [Unknown]
  - Headache [Not Recovered/Not Resolved]
  - Microcytic anaemia [Not Recovered/Not Resolved]
  - Platelet count increased [Not Recovered/Not Resolved]
  - White blood cell count increased [Unknown]
  - Kidney infection [Recovered/Resolved]
  - Dizziness [Unknown]
  - Asthenia [Not Recovered/Not Resolved]
  - White blood cell count increased [Recovered/Resolved]
  - Neutrophil count increased [Not Recovered/Not Resolved]

NARRATIVE: CASE EVENT DATE: 2008
